FAERS Safety Report 23327654 (Version 1)
Quarter: 2023Q4

REPORT INFORMATION
  Report Type: Spontaneous
  Country: US (occurrence: None)
  Receive Date: 20231221
  Receipt Date: 20231221
  Transmission Date: 20240110
  Serious: No
  Sender: FDA-Public Use
  Company Number: None

PATIENT

DRUGS (1)
  1. EPIDIOLEX [Suspect]
     Active Substance: CANNABIDIOL
     Route: 048

REACTIONS (4)
  - Product lot number issue [None]
  - Product packaging confusion [None]
  - Product label confusion [None]
  - Product communication issue [None]
